FAERS Safety Report 13002046 (Version 1)
Quarter: 2016Q4

REPORT INFORMATION
  Report Type: Other
  Country: DE (occurrence: DE)
  Receive Date: 20161206
  Receipt Date: 20161206
  Transmission Date: 20170207
  Serious: Yes (Other)
  Sender: FDA-Public Use
  Company Number: DE-ASTELLAS-2016US047646

PATIENT
  Sex: Male

DRUGS (2)
  1. AMPHOTERICIN B. [Suspect]
     Active Substance: AMPHOTERICIN B
     Indication: SYSTEMIC MYCOSIS
     Dosage: 200 MG, ONCE DAILY OVER 3 DAYS
     Route: 042
     Dates: start: 20160120
  2. AMBISOME [Suspect]
     Active Substance: AMPHOTERICIN B
     Indication: SYSTEMIC MYCOSIS
     Dosage: UNK UNK, UNKNOWN FREQ.
     Route: 042

REACTIONS (5)
  - Product name confusion [Unknown]
  - Tremor [Unknown]
  - Drug prescribing error [Unknown]
  - Pyrexia [Recovered/Resolved]
  - Apathy [Unknown]

NARRATIVE: CASE EVENT DATE: 20160120
